FAERS Safety Report 5151379-7 (Version None)
Quarter: 2006Q4

REPORT INFORMATION
  Report Type: 
  Country: None (occurrence: None)
  Receive Date: 20061115
  Receipt Date: 20061030
  Transmission Date: 20070319
  Serious: Yes (Death)
  Sender: FDA-Public Use
  Company Number: US-BRACCO-BDI-008768

PATIENT
  Sex: Female

DRUGS (5)
  1. ISOVUE-128 [Suspect]
     Dosage: 1.8 ML/SEC
     Route: 050
     Dates: start: 20061019, end: 20061019
  2. ISOVUE-128 [Suspect]
     Dosage: 1.8 ML/SEC
     Route: 050
     Dates: start: 20061019, end: 20061019
  3. FLOVENT [Concomitant]
     Route: 050
  4. ALBUTEROL [Concomitant]
     Route: 050
  5. METHYLPREDNISOLONE [Interacting]
     Dosage: 1 DOSE 12 HOURS PRIOR AND 1 DOSE 2 HOURS PRIOR TO THE PROCEDURE
     Route: 050
     Dates: start: 20061018, end: 20061019

REACTIONS (2)
  - DEPRESSED LEVEL OF CONSCIOUSNESS [None]
  - DYSPNOEA [None]
